FAERS Safety Report 22153135 (Version 2)
Quarter: 2023Q2

REPORT INFORMATION
  Report Type: Spontaneous
  Country: US (occurrence: US)
  Receive Date: 20230329
  Receipt Date: 20230505
  Transmission Date: 20230722
  Serious: No
  Sender: FDA-Public Use
  Company Number: US-BRISTOL-MYERS SQUIBB COMPANY-2023-028835

PATIENT
  Age: 79 Year
  Sex: Female
  Weight: 113.4 kg

DRUGS (11)
  1. ELIQUIS [Suspect]
     Active Substance: APIXABAN
     Indication: Cerebrovascular accident prophylaxis
     Route: 048
     Dates: start: 20230218
  2. ALLOPURINOL [Concomitant]
     Active Substance: ALLOPURINOL
     Indication: Product used for unknown indication
     Dosage: TAKE 2 MG} THE MORNING BY MOUTH
     Route: 048
     Dates: start: 20230421
  3. HYDROCHLOROTHIAZIDE\VALSARTAN [Concomitant]
     Active Substance: HYDROCHLOROTHIAZIDE\VALSARTAN
     Indication: Product used for unknown indication
     Dosage: 320-25 MG, TAKE 1 TABLET THE MORNING BY MOUTH.
     Route: 048
     Dates: start: 20230420
  4. LASIX [Concomitant]
     Active Substance: FUROSEMIDE
     Indication: Product used for unknown indication
     Dosage: TAKE TABLET (20 MG) TIME DAILY AS NEEDED BY MOUTH FOR OTHER
     Route: 048
     Dates: start: 20230216
  5. COLCHICINE [Concomitant]
     Active Substance: COLCHICINE
     Indication: Product used for unknown indication
     Dosage: TAKE MG (0.6 MG) TIME DAILY AS NEEDED BY MOUTH FOR (GOUT} TAKE 1 PILL EVENT 4 TILL LOOSE BOWEL THEN
     Route: 048
     Dates: start: 20230216
  6. METOPROLOL SUCCINATE [Concomitant]
     Active Substance: METOPROLOL SUCCINATE
     Indication: Product used for unknown indication
     Dosage: TAKE TABLET (25 MG) TIME AS NEEDED BY MOUTH FOR ELEVATED HEART RATE.
     Route: 048
     Dates: start: 20230214
  7. ACETAMINOPHEN [Concomitant]
     Active Substance: ACETAMINOPHEN
     Indication: Product used for unknown indication
     Dosage: TAKE 2TABLET BY MOUTH EVERY 4 HOURS AS NEEDED FOR PAIN. PATIENT TAKING 1TAB EVERY FOUR THROUGHOUT TH
     Route: 048
     Dates: start: 20230213
  8. MELATONIN [Concomitant]
     Active Substance: MELATONIN
     Indication: Product used for unknown indication
     Dosage: TAKE TABLET {5 MG) DAILY AT BEDTIME BY MOUTH.
     Route: 048
     Dates: start: 20230213
  9. GLIMEPIRIDE [Concomitant]
     Active Substance: GLIMEPIRIDE
     Indication: Product used for unknown indication
     Dosage: TAKE 2 TABLET (4 MG) DAILY WITH BREAKFAST MOUTH
     Route: 048
     Dates: start: 20230213
  10. METFORMIN [Concomitant]
     Active Substance: METFORMIN HYDROCHLORIDE
     Indication: Product used for unknown indication
     Dosage: TAKE TABLET {1,000 MG) IN THE MORNING AND 1 TABLET (1000 MG) IN THE EVENING BY MOUTH. TAKE MEALS.
     Route: 048
     Dates: start: 20230213
  11. AMLODIPINE [Concomitant]
     Active Substance: AMLODIPINE BESYLATE
     Indication: Product used for unknown indication
     Dosage: TAKE TABLET (5 MG) IN THE MORNING BY MOUTH.
     Route: 048
     Dates: start: 20230203

REACTIONS (2)
  - Pruritus [Unknown]
  - Product dose omission issue [Unknown]

NARRATIVE: CASE EVENT DATE: 20230218
